FAERS Safety Report 19186667 (Version 2)
Quarter: 2022Q4

REPORT INFORMATION
  Report Type: Spontaneous
  Country: US (occurrence: US)
  Receive Date: 20210427
  Receipt Date: 20221109
  Transmission Date: 20230112
  Serious: Yes (Other)
  Sender: FDA-Public Use
  Company Number: US-GILEAD-2021-0526920

PATIENT
  Age: 58 Year
  Sex: Male

DRUGS (5)
  1. YESCARTA [Suspect]
     Active Substance: AXICABTAGENE CILOLEUCEL
     Indication: Diffuse large B-cell lymphoma recurrent
     Dosage: 2X10^6 ANTI-CD19 CAR-TCELLS/KG
     Route: 065
  2. CYCLOPHOSPHAMIDE [Suspect]
     Active Substance: CYCLOPHOSPHAMIDE
     Indication: Diffuse large B-cell lymphoma
     Dosage: LYMPHODEPLETING CHEMOTHERAPY
     Route: 065
  3. FLUDARABINE [Suspect]
     Active Substance: FLUDARABINE PHOSPHATE
     Indication: Diffuse large B-cell lymphoma
     Dosage: LYMPHODEPLETING CHEMOTHERAPY
     Route: 065
  4. GEMCITABINE HYDROCHLORIDE [Concomitant]
     Active Substance: GEMCITABINE HYDROCHLORIDE
     Indication: Bone marrow conditioning regimen
  5. OXALIPLATIN [Concomitant]
     Active Substance: OXALIPLATIN
     Indication: Bone marrow conditioning regimen

REACTIONS (5)
  - Pancytopenia [Recovered/Resolved]
  - Immune effector cell-associated neurotoxicity syndrome [Recovered/Resolved]
  - Cytokine release syndrome [Recovered/Resolved]
  - Neutropenia [Recovered/Resolved]
  - Bone marrow failure [Recovering/Resolving]
